FAERS Safety Report 8476825-2 (Version None)
Quarter: 2012Q2

REPORT INFORMATION
  Report Type: 
  Country: None (occurrence: None)
  Receive Date: 20120629
  Receipt Date: 20120621
  Transmission Date: 20120825
  Serious: Yes (Hospitalization)
  Sender: FDA-Public Use
  Company Number: US-JNJFOC-20120605012

PATIENT
  Sex: Male
  Weight: 76.8 kg

DRUGS (4)
  1. PREDNISONE [Concomitant]
  2. HUMIRA [Concomitant]
     Indication: INFLAMMATORY BOWEL DISEASE
     Dates: end: 20120601
  3. REMICADE [Suspect]
     Dosage: RESTARTED AS TREATMENT FOR EVENT
     Route: 042
     Dates: start: 20120601
  4. REMICADE [Suspect]
     Indication: INFLAMMATORY BOWEL DISEASE
     Dosage: STOPPED PRIOR TO ENROLLMENT IN STUDY
     Route: 042
     Dates: start: 20080714

REACTIONS (1)
  - SACROILIITIS [None]
